FAERS Safety Report 26031859 (Version 1)
Quarter: 2025Q4

REPORT INFORMATION
  Report Type: Spontaneous
  Country: EU (occurrence: EU)
  Receive Date: 20251112
  Receipt Date: 20251112
  Transmission Date: 20260118
  Serious: Yes (Life-Threatening, Other)
  Sender: AUROBINDO
  Company Number: EU-AFSSAPS-AN2025001363

PATIENT
  Age: 53 Year
  Sex: Female

DRUGS (2)
  1. SPIRONOLACTONE [Interacting]
     Active Substance: SPIRONOLACTONE
     Indication: Hypertensive heart disease
     Dosage: 150 MILLIGRAM, ONCE A DAY
     Route: 048
     Dates: end: 20251009
  2. BUMETANIDE [Interacting]
     Active Substance: BUMETANIDE
     Indication: Hypertensive heart disease
     Dosage: 20 MILLIGRAM, ONCE A DAY
     Route: 048
     Dates: end: 20251009

REACTIONS (2)
  - Acute kidney injury [Recovered/Resolved]
  - Drug interaction [Recovered/Resolved]

NARRATIVE: CASE EVENT DATE: 20251009
